FAERS Safety Report 10378660 (Version 1)
Quarter: 2014Q3

REPORT INFORMATION
  Report Type: Spontaneous
  Country: US (occurrence: None)
  Receive Date: 20140811
  Receipt Date: 20140811
  Transmission Date: 20150326
  Serious: No
  Sender: FDA-Public Use
  Company Number: None

PATIENT
  Age: 75 Year
  Sex: Male
  Weight: 61.24 kg

DRUGS (2)
  1. DOXYCYCLINE HYCLATE. [Suspect]
     Active Substance: DOXYCYCLINE HYCLATE
     Indication: PROSTATIC OPERATION
     Route: 048
     Dates: start: 20140702, end: 20140712
  2. DOXYCYCLINE HYCLATE. [Suspect]
     Active Substance: DOXYCYCLINE HYCLATE
     Indication: POST PROCEDURAL INFECTION
     Route: 048
     Dates: start: 20140702, end: 20140712

REACTIONS (5)
  - Asthenia [None]
  - Reflexes abnormal [None]
  - Pharyngeal oedema [None]
  - Dysarthria [None]
  - Swollen tongue [None]

NARRATIVE: CASE EVENT DATE: 20140711
